FAERS Safety Report 17892336 (Version 2)
Quarter: 2021Q1

REPORT INFORMATION
  Report Type: Spontaneous
  Country: US (occurrence: US)
  Receive Date: 20200612
  Receipt Date: 20210322
  Transmission Date: 20210419
  Serious: No
  Sender: FDA-Public Use
  Company Number: US-BIOHAVEN PHARMACEUTICALS-2020BHV00018

PATIENT
  Sex: Female

DRUGS (4)
  1. NURTEC ODT [Suspect]
     Active Substance: RIMEGEPANT SULFATE
     Dosage: UNK
  2. SUMATRIPTAN. [Concomitant]
     Active Substance: SUMATRIPTAN
  3. NURTEC ODT [Suspect]
     Active Substance: RIMEGEPANT SULFATE
     Dosage: UNK, 2X/DAY (SEVERAL HOURS APART)
  4. NURTEC ODT [Suspect]
     Active Substance: RIMEGEPANT SULFATE
     Indication: HEADACHE
     Dosage: UNK
     Dates: start: 202004, end: 202004

REACTIONS (2)
  - Drug ineffective [Recovered/Resolved]
  - Overdose [Recovered/Resolved]

NARRATIVE: CASE EVENT DATE: 202004
